FAERS Safety Report 21083449 (Version 3)
Quarter: 2022Q3

REPORT INFORMATION
  Report Type: Spontaneous
  Country: US (occurrence: US)
  Receive Date: 20220714
  Receipt Date: 20220921
  Transmission Date: 20221027
  Serious: No
  Sender: FDA-Public Use
  Company Number: US-BRISTOL-MYERS SQUIBB COMPANY-2022-073582

PATIENT
  Age: 79 Year
  Sex: Female
  Weight: 70.30 kg

DRUGS (2)
  1. POMALYST [Suspect]
     Active Substance: POMALIDOMIDE
     Indication: Plasma cell myeloma
     Dosage: FREQ - DAILY FOR 21DAYS
     Route: 048
  2. POMALYST [Suspect]
     Active Substance: POMALIDOMIDE
     Dosage: 21D ON 7D OFF
     Route: 048

REACTIONS (6)
  - White blood cell count decreased [Not Recovered/Not Resolved]
  - Asthenia [Unknown]
  - Lethargy [Unknown]
  - Asthenia [Unknown]
  - Somnolence [Not Recovered/Not Resolved]
  - Fatigue [Not Recovered/Not Resolved]
